FAERS Safety Report 9466143 (Version 1)
Quarter: 2013Q3

REPORT INFORMATION
  Report Type: Spontaneous
  Country: US (occurrence: None)
  Receive Date: 20130816
  Receipt Date: 20130816
  Transmission Date: 20140515
  Serious: Yes (Disabling)
  Sender: FDA-Public Use
  Company Number: None

PATIENT
  Age: 35 Year
  Sex: Female
  Weight: 83.46 kg

DRUGS (1)
  1. VIIBRYD [Suspect]
     Indication: DEPRESSION
     Dosage: 1 PILL  ONCE DAILY  TAKEN BY MOUTH
     Route: 048
     Dates: start: 20130711, end: 20130731

REACTIONS (16)
  - Dizziness [None]
  - Insomnia [None]
  - Abdominal discomfort [None]
  - Flatulence [None]
  - Hypoaesthesia [None]
  - Vision blurred [None]
  - Abnormal dreams [None]
  - Pollakiuria [None]
  - Hallucination [None]
  - Eye pruritus [None]
  - Ocular hyperaemia [None]
  - Feeling abnormal [None]
  - Anger [None]
  - Headache [None]
  - Depressed level of consciousness [None]
  - Paralysis [None]
